FAERS Safety Report 4334221-3 (Version None)
Quarter: 2004Q2

REPORT INFORMATION
  Report Type: 
  Country: None (occurrence: None)
  Receive Date: 20040402
  Receipt Date: 20040325
  Transmission Date: 20050107
  Serious: Yes (Life-Threatening)
  Sender: FDA-Public Use
  Company Number: 2004205551ES

PATIENT
  Age: 55 Year
  Sex: Male
  Weight: 96 kg

DRUGS (1)
  1. CELEBREX [Suspect]
     Indication: OSTEOARTHRITIS
     Dosage: 100 MG QD, ORAL
     Route: 048
     Dates: start: 20031212, end: 20040107

REACTIONS (1)
  - RETINAL ARTERY THROMBOSIS [None]
